FAERS Safety Report 7401974-7 (Version None)
Quarter: 2011Q2

REPORT INFORMATION
  Report Type: 
  Country: None (occurrence: None)
  Receive Date: 20110408
  Receipt Date: 20110218
  Transmission Date: 20111010
  Serious: Yes (Death, Other)
  Sender: FDA-Public Use
  Company Number: US-BAYER-201010319NA

PATIENT
  Sex: Female
  Weight: 52.608 kg

DRUGS (1)
  1. TRASYLOL [Suspect]
     Indication: PRODUCT USED FOR UNKNOWN INDICATION
     Route: 042
     Dates: start: 19980829

REACTIONS (12)
  - RENAL FAILURE [None]
  - EMOTIONAL DISTRESS [None]
  - FEAR [None]
  - DEATH [None]
  - RENAL INJURY [None]
  - ANXIETY [None]
  - INJURY [None]
  - RENAL IMPAIRMENT [None]
  - STRESS [None]
  - PAIN [None]
  - ANHEDONIA [None]
  - UNEVALUABLE EVENT [None]
